FAERS Safety Report 18297243 (Version 1)
Quarter: 2020Q3

REPORT INFORMATION
  Report Type: Spontaneous
  Country: US (occurrence: US)
  Receive Date: 20200922
  Receipt Date: 20200922
  Transmission Date: 20201103
  Serious: Yes (Other)
  Sender: FDA-Public Use
  Company Number: US-BEXIMCO-2020BEX00134

PATIENT
  Sex: Male
  Weight: 122.45 kg

DRUGS (6)
  1. UNSPECIFIED BLOOD PRESSURE MEDICATION [Concomitant]
     Active Substance: UNSPECIFIED INGREDIENT
  2. POTASSIUM [Concomitant]
     Active Substance: POTASSIUM
  3. GLUCOSAMINE [Suspect]
     Active Substance: GLUCOSAMINE
     Dosage: UNK
  4. UNSPECIFIED VITAMINS [Concomitant]
     Active Substance: VITAMINS
  5. METFORMIN HYDROCHLORIDE. [Suspect]
     Active Substance: METFORMIN HYDROCHLORIDE
     Indication: TYPE 2 DIABETES MELLITUS
     Dosage: 750 MG, 2X/DAY, 1 TABLET EVERY MORNING AND 1 TABLET EVERY EVENING
     Route: 048
  6. UNSPECIFIED DIURETIC [Concomitant]
     Active Substance: UNSPECIFIED INGREDIENT

REACTIONS (8)
  - Diarrhoea [Recovering/Resolving]
  - Product use complaint [Not Recovered/Not Resolved]
  - Product dose omission issue [Not Recovered/Not Resolved]
  - Body height decreased [Unknown]
  - Diverticulitis [Unknown]
  - Food interaction [Unknown]
  - Prostate cancer [Unknown]
  - Gastrointestinal injury [Unknown]
